FAERS Safety Report 10448336 (Version 2)
Quarter: 2014Q3

REPORT INFORMATION
  Report Type: Report from Study
  Country: CN (occurrence: CN)
  Receive Date: 20140911
  Receipt Date: 20140911
  Transmission Date: 20150326
  Serious: Yes (Death, Hospitalization)
  Sender: FDA-Public Use
  Company Number: CN-CELGENEUS-035-AB007-14063185

PATIENT
  Age: 44 Year
  Sex: Male
  Weight: 64 kg

DRUGS (12)
  1. ETAMSYLATE [Concomitant]
     Active Substance: ETHAMSYLATE
     Indication: HAEMORRHAGE
     Dosage: .5 GRAM
     Route: 041
     Dates: start: 20140722, end: 20140724
  2. SOMATOSTATIN [Concomitant]
     Active Substance: SOMATOSTATIN
     Indication: HAEMORRHAGE
     Dosage: 3 MILLIGRAM
     Dates: start: 20140722, end: 20140724
  3. GEMCITABINE [Suspect]
     Active Substance: GEMCITABINE\GEMCITABINE HYDROCHLORIDE
     Route: 041
     Dates: start: 20140606, end: 20140606
  4. GEMCITABINE [Suspect]
     Active Substance: GEMCITABINE\GEMCITABINE HYDROCHLORIDE
     Route: 041
     Dates: start: 20140701, end: 20140701
  5. HEMOCOAGULASE [Concomitant]
     Indication: HAEMORRHAGE
     Dosage: KU
     Route: 030
     Dates: start: 20140722, end: 20140724
  6. ABRAXANE [Suspect]
     Active Substance: PACLITAXEL
     Route: 041
     Dates: start: 20140618
  7. ADRENOBAZONUM [Concomitant]
     Indication: HAEMORRHAGE
     Dosage: 15 MILLIGRAM
     Route: 048
     Dates: start: 20140722, end: 20140724
  8. ABRAXANE [Suspect]
     Active Substance: PACLITAXEL
     Route: 041
     Dates: start: 20140606, end: 20140606
  9. ABRAXANE [Suspect]
     Active Substance: PACLITAXEL
     Indication: PANCREATIC CARCINOMA METASTATIC
     Route: 041
     Dates: start: 20140307, end: 20140307
  10. ABRAXANE [Suspect]
     Active Substance: PACLITAXEL
     Route: 041
     Dates: start: 20140701, end: 20140701
  11. GEMCITABINE [Suspect]
     Active Substance: GEMCITABINE\GEMCITABINE HYDROCHLORIDE
     Indication: PANCREATIC CARCINOMA METASTATIC
     Route: 041
     Dates: start: 20140307, end: 20140307
  12. GEMCITABINE [Suspect]
     Active Substance: GEMCITABINE\GEMCITABINE HYDROCHLORIDE
     Route: 041
     Dates: start: 20140618

REACTIONS (1)
  - Haemoglobin decreased [Fatal]

NARRATIVE: CASE EVENT DATE: 20140618
